FAERS Safety Report 19794685 (Version 2)
Quarter: 2021Q3

REPORT INFORMATION
  Report Type: Report from Study
  Country: US (occurrence: US)
  Receive Date: 20210906
  Receipt Date: 20210928
  Transmission Date: 20211014
  Serious: Yes (Hospitalization)
  Sender: FDA-Public Use
  Company Number: US-ADC THERAPEUTICS-ADC-2021-000116

PATIENT
  Age: 85 Year
  Sex: Female

DRUGS (9)
  1. SPIRONOLACTONE. [Concomitant]
     Active Substance: SPIRONOLACTONE
     Indication: WEIGHT INCREASED
     Dosage: UNK DOSAGE FORM
  2. RITUXIMAB. [Suspect]
     Active Substance: RITUXIMAB
     Indication: DIFFUSE LARGE B-CELL LYMPHOMA
     Dosage: 620 UNK
     Route: 042
     Dates: start: 20210420, end: 20210805
  3. LUMIGAN [Concomitant]
     Active Substance: BIMATOPROST
     Dosage: UNK
  4. METOPROLOL TARTRATE. [Concomitant]
     Active Substance: METOPROLOL TARTRATE
     Dosage: UNK
  5. HYDROCODONE/ACETAMINOPHEN [Concomitant]
     Active Substance: ACETAMINOPHEN\HYDROCODONE
     Dosage: UNK
  6. COVID?19 VACCINE [Concomitant]
     Dosage: UNK
  7. LONCASTUXIMAB TESIRINE. [Suspect]
     Active Substance: LONCASTUXIMAB TESIRINE
     Indication: DIFFUSE LARGE B-CELL LYMPHOMA
     Dosage: 75 UNK
     Route: 042
     Dates: start: 20210420, end: 20210713
  8. DORZOLAMIDE HCL [Concomitant]
     Active Substance: DORZOLAMIDE HYDROCHLORIDE
     Dosage: UNK
  9. MULTIVITAMINS [VITAMINS NOS] [Concomitant]
     Active Substance: VITAMINS
     Dosage: UNK

REACTIONS (1)
  - Hyponatraemia [Recovered/Resolved]

NARRATIVE: CASE EVENT DATE: 20210805
